FAERS Safety Report 7303881-7 (Version None)
Quarter: 2011Q1

REPORT INFORMATION
  Report Type: 
  Country: None (occurrence: None)
  Receive Date: 20110221
  Receipt Date: 20110211
  Transmission Date: 20110831
  Serious: Yes (Death, Hospitalization)
  Sender: FDA-Public Use
  Company Number: B0699420A

PATIENT
  Sex: Female

DRUGS (4)
  1. ZOPHREN [Suspect]
     Indication: NAUSEA
     Route: 048
     Dates: start: 20100924
  2. EMEND [Concomitant]
     Indication: NAUSEA
     Route: 048
     Dates: start: 20101103
  3. CARBOPLATIN [Suspect]
     Route: 042
     Dates: start: 20100922, end: 20100922
  4. SOLUPRED [Concomitant]
     Dosage: 40MG PER DAY
     Dates: start: 20101103

REACTIONS (2)
  - THROMBOTIC MICROANGIOPATHY [None]
  - THROMBOCYTOPENIA [None]
